FAERS Safety Report 5908936-7 (Version None)
Quarter: 2008Q4

REPORT INFORMATION
  Report Type: 
  Country: None (occurrence: None)
  Receive Date: 20081001
  Receipt Date: 20080714
  Transmission Date: 20090506
  Serious: Yes (Other)
  Sender: FDA-Public Use
  Company Number: 1-16406212

PATIENT
  Age: 44 Year
  Sex: Female
  Weight: 77.1115 kg

DRUGS (1)
  1. PHENYTOIN SODIUM EXTENDED [Suspect]
     Indication: EPILEPSY
     Dosage: 500 MG DAILY IN DIVIDED DOSES, ORAL
     Route: 048
     Dates: start: 20080505

REACTIONS (12)
  - ASTHENIA [None]
  - DIZZINESS POSTURAL [None]
  - DRUG INEFFECTIVE [None]
  - DRUG LEVEL DECREASED [None]
  - DRUG LEVEL INCREASED [None]
  - EPILEPTIC AURA [None]
  - FACIAL PALSY [None]
  - LETHARGY [None]
  - MENTAL IMPAIRMENT [None]
  - PRODUCT QUALITY ISSUE [None]
  - SIMPLE PARTIAL SEIZURES [None]
  - THERAPEUTIC RESPONSE UNEXPECTED WITH DRUG SUBSTITUTION [None]
